FAERS Safety Report 16900311 (Version 1)
Quarter: 2019Q4

REPORT INFORMATION
  Report Type: Spontaneous
  Country: US (occurrence: US)
  Receive Date: 20191009
  Receipt Date: 20191009
  Transmission Date: 20200122
  Serious: No
  Sender: FDA-Public Use
  Company Number: US-009507513-1909USA007267

PATIENT
  Age: 17 Year
  Sex: Female

DRUGS (1)
  1. NASONEX [Suspect]
     Active Substance: MOMETASONE FUROATE
     Indication: SLEEP APNOEA SYNDROME
     Dosage: UNK
     Route: 045

REACTIONS (1)
  - Product use in unapproved indication [Unknown]
